FAERS Safety Report 7790731-8 (Version None)
Quarter: 2011Q3

REPORT INFORMATION
  Report Type: 
  Country: None (occurrence: None)
  Receive Date: 20110930
  Receipt Date: 20110920
  Transmission Date: 20111222
  Serious: Yes (Congenital Anomaly)
  Sender: FDA-Public Use
  Company Number: CH-ABBOTT-11P-151-0859498-00

PATIENT

DRUGS (3)
  1. NEVIRAPINE [Concomitant]
     Indication: PROPHYLAXIS AGAINST HIV INFECTION
     Dosage: AT BIRTH
  2. KALETRA [Suspect]
     Indication: MATERNAL EXPOSURE DURING PREGNANCY
     Route: 064
  3. ZIDOVUDINE [Concomitant]
     Indication: PROPHYLAXIS AGAINST HIV INFECTION
     Dosage: FOR 1 WEEK
     Dates: start: 20061201

REACTIONS (1)
  - CONGENITAL ANOMALY [None]
